FAERS Safety Report 5739425-0 (Version None)
Quarter: 2008Q2

REPORT INFORMATION
  Report Type: 
  Country: None (occurrence: None)
  Receive Date: 20080515
  Receipt Date: 20080505
  Transmission Date: 20081010
  Serious: Yes (Other)
  Sender: FDA-Public Use
  Company Number: US-PFIZER INC-2008038979

PATIENT

DRUGS (2)
  1. CELEBREX [Suspect]
  2. FUROSEMIDE [Concomitant]

REACTIONS (1)
  - BLOOD URIC ACID INCREASED [None]
